FAERS Safety Report 22385179 (Version 1)
Quarter: 2023Q2

REPORT INFORMATION
  Report Type: Spontaneous
  Country: US (occurrence: None)
  Receive Date: 20230527
  Receipt Date: 20230527
  Transmission Date: 20230722
  Serious: Yes (Death)
  Sender: FDA-Public Use
  Company Number: None

PATIENT
  Age: 77 Year
  Sex: Male

DRUGS (1)
  1. PROMACTA [Suspect]
     Active Substance: ELTROMBOPAG OLAMINE
     Indication: Thrombocytopenia
     Dosage: 25MG QD ORAL
     Route: 048
     Dates: start: 20230418, end: 20230423

REACTIONS (4)
  - Anaemia [None]
  - Cardiogenic shock [None]
  - Intra-abdominal fluid collection [None]
  - Post procedural complication [None]

NARRATIVE: CASE EVENT DATE: 20230429
